FAERS Safety Report 18640346 (Version 2)
Quarter: 2020Q4

REPORT INFORMATION
  Report Type: Spontaneous
  Country: BR (occurrence: BR)
  Receive Date: 20201221
  Receipt Date: 20201230
  Transmission Date: 20210114
  Serious: Yes (Other)
  Sender: FDA-Public Use
  Company Number: BR-CELLTRION INC.-2020BR033471

PATIENT

DRUGS (5)
  1. PREDNISONE. [Concomitant]
     Active Substance: PREDNISONE
     Dosage: UNK
     Route: 048
  2. VITAMIN D [COLECALCIFEROL] [Concomitant]
     Active Substance: CHOLECALCIFEROL
     Dosage: UNK
     Route: 048
  3. PREDNISONA [Concomitant]
     Active Substance: PREDNISONE
     Dosage: 40 MG, CAN REMOVE LITTLE BY LITTLE USED FOR STOMACH
  4. REMSIMA [Suspect]
     Active Substance: INFLIXIMAB
     Indication: RHEUMATOID ARTHRITIS
     Dosage: START DATE: ABOUT 1 YEAR AND A HALF AT 4 AMPOULS OF THE PRODUCT EVERY 6 WEEKS BETWEEN VIA ENDOVENOUS
     Dates: end: 202009
  5. REMSIMA [Suspect]
     Active Substance: INFLIXIMAB
     Dosage: LAST APPLICATION, OCCURRED IN THE LAST MONTH (DATE UNSPECIFIED)

REACTIONS (10)
  - Off label use [Unknown]
  - Product availability issue [Unknown]
  - Headache [Recovering/Resolving]
  - Bone pain [Unknown]
  - Pain [Recovering/Resolving]
  - Insomnia [Recovering/Resolving]
  - Therapy interrupted [Unknown]
  - Pyrexia [Recovering/Resolving]
  - Uveitis [Unknown]
  - Visual impairment [Recovering/Resolving]

NARRATIVE: CASE EVENT DATE: 202009
